FAERS Safety Report 8826427 (Version 1)
Quarter: 2012Q4

REPORT INFORMATION
  Report Type: 
  Country: GB (occurrence: GB)
  Receive Date: 20121005
  Receipt Date: 20121005
  Transmission Date: 20130627
  Serious: Yes (Other)
  Sender: FDA-Public Use
  Company Number: PHFR2012GB005164

PATIENT
  Age: 34 Year
  Sex: Female

DRUGS (2)
  1. CLOZARIL [Suspect]
     Indication: SCHIZOPHRENIA
     Route: 048
     Dates: start: 20110207
  2. LITHIUM [Concomitant]

REACTIONS (6)
  - Herpes zoster [Unknown]
  - Antipsychotic drug level increased [Unknown]
  - Neutrophil count increased [Unknown]
  - White blood cell count increased [Unknown]
  - Eosinophil count increased [Unknown]
  - Malaise [Unknown]
